FAERS Safety Report 6044047-0 (Version None)
Quarter: 2009Q1

REPORT INFORMATION
  Report Type: 
  Country: None (occurrence: None)
  Receive Date: 20090120
  Receipt Date: 20090113
  Transmission Date: 20090719
  Serious: Yes (Hospitalization)
  Sender: FDA-Public Use
  Company Number: DE-JNJFOC-20090102072

PATIENT
  Age: 85 Year
  Sex: Female

DRUGS (9)
  1. IMODIUM [Suspect]
     Indication: PROPHYLAXIS
     Route: 048
  2. AMARYL [Concomitant]
     Indication: DIABETES MELLITUS
     Route: 048
  3. AMLODIPINE [Concomitant]
     Indication: HYPERTENSION
  4. BISOPROLOL [Concomitant]
     Indication: HYPERTENSION
     Route: 048
  5. LISINOPRIL [Concomitant]
     Indication: HYPERTENSION
     Route: 048
  6. METFORMIN HCL [Concomitant]
     Indication: DIABETES MELLITUS
     Route: 048
  7. MOXONIDINE [Concomitant]
     Indication: HYPERTENSION
     Route: 048
  8. XALACOM [Concomitant]
     Indication: GLAUCOMA
     Route: 003
  9. XIPAMIDE [Concomitant]
     Indication: HYPERTENSION
     Route: 048

REACTIONS (1)
  - FAECALOMA [None]
